FAERS Safety Report 21510058 (Version 1)
Quarter: 2022Q4

REPORT INFORMATION
  Report Type: Spontaneous
  Country: US (occurrence: None)
  Receive Date: 20221026
  Receipt Date: 20221026
  Transmission Date: 20230113
  Serious: No
  Sender: FDA-Public Use
  Company Number: US-NESTLEHEALTHSCIENCE-2022000092

PATIENT
  Sex: Female

DRUGS (1)
  1. ZENPEP [Suspect]
     Active Substance: PANCRELIPASE AMYLASE\PANCRELIPASE LIPASE\PANCRELIPASE PROTEASE
     Indication: Pancreatic failure
     Dosage: WAS PUT ON 50,000 UNITS O F ZENPEP THREE TIMES A DAY AND NOW 100,000 UNITS THREE TIMES A DAY
     Dates: start: 202201

REACTIONS (5)
  - Bowel movement irregularity [Unknown]
  - Abdominal discomfort [Unknown]
  - Defaecation urgency [Unknown]
  - Gallbladder disorder [Unknown]
  - Abdominal distension [Unknown]

NARRATIVE: CASE EVENT DATE: 20220101
